FAERS Safety Report 21979674 (Version 2)
Quarter: 2023Q2

REPORT INFORMATION
  Report Type: Spontaneous
  Country: US (occurrence: US)
  Receive Date: 20230210
  Receipt Date: 20230414
  Transmission Date: 20230721
  Serious: Yes (Other)
  Sender: FDA-Public Use
  Company Number: US-TEVA-2023-US-2854178

PATIENT
  Age: 66 Year
  Sex: Male
  Weight: 81.64 kg

DRUGS (14)
  1. HYDROCHLOROTHIAZIDE\VALSARTAN [Suspect]
     Active Substance: HYDROCHLOROTHIAZIDE\VALSARTAN
     Indication: Hypertension
     Dosage: DOSE 320-25 MG, TAKE 1 TABLET BY MOUTH ONCE DAY
     Route: 048
     Dates: start: 20121105, end: 20141011
  2. HYDROCHLOROTHIAZIDE\VALSARTAN [Suspect]
     Active Substance: HYDROCHLOROTHIAZIDE\VALSARTAN
     Indication: Hypertension
     Dosage: 320-25 MG, TAKE 1 TABLET BY MOUTH ONCE DAY
     Route: 048
     Dates: start: 20120104, end: 20121020
  3. HYDROCHLOROTHIAZIDE\VALSARTAN [Suspect]
     Active Substance: HYDROCHLOROTHIAZIDE\VALSARTAN
     Indication: Hypertension
     Dosage: 320-25 MG, TAKE 1 TABLET BY MOUTH ONCE DAY
     Route: 048
     Dates: start: 20130216, end: 20150304
  4. HYDROCHLOROTHIAZIDE\VALSARTAN [Suspect]
     Active Substance: HYDROCHLOROTHIAZIDE\VALSARTAN
     Indication: Hypertension
     Dosage: 320-25 MG, TAKE 1 TABLET BY MOUTH ONCE DAY
     Route: 048
     Dates: start: 20150210, end: 20160418
  5. HYDROCHLOROTHIAZIDE\VALSARTAN [Suspect]
     Active Substance: HYDROCHLOROTHIAZIDE\VALSARTAN
     Indication: Hypertension
     Dosage: 320-25 MG, TAKE 1 TABLET BY MOUTH ONCE DAY
     Route: 048
     Dates: start: 20140326, end: 20150213
  6. CARVEDILOL [Concomitant]
     Active Substance: CARVEDILOL
     Indication: Product used for unknown indication
     Dosage: 25 MILLIGRAM DAILY; TAKE 1 TABLET BY MOUTH TWICE A DAY WITH FOOD
     Route: 048
     Dates: start: 201201
  7. SIMVASTATIN [Concomitant]
     Active Substance: SIMVASTATIN
     Indication: Product used for unknown indication
     Dosage: 80 MILLIGRAM DAILY; TAKE1 TABLET BY MOUTH ONCE DAILY IN EVENING
     Route: 048
     Dates: start: 201201
  8. NIFEDIPINE [Concomitant]
     Active Substance: NIFEDIPINE
     Indication: Product used for unknown indication
     Dosage: 90 MILLIGRAM DAILY; ER TABLET, TAKE 1 TABLET BY MOUTH ONCE DAILY
     Route: 048
     Dates: start: 201201
  9. CLOPIDOGREL [Concomitant]
     Active Substance: CLOPIDOGREL BISULFATE
     Indication: Product used for unknown indication
     Dosage: 75 MILLIGRAM DAILY; TAKE 1 TABLET BY MOUTH ONCE DAILY
     Route: 048
     Dates: start: 201209
  10. HYDRALAZINE [Concomitant]
     Active Substance: HYDRALAZINE HYDROCHLORIDE
     Indication: Product used for unknown indication
     Dosage: 30 MILLIGRAM DAILY; TAKE ONE TABLET BY MOUTH THREE TIMES A DAY WITH FOOD
     Route: 048
     Dates: start: 201304
  11. JANUVIA [Concomitant]
     Active Substance: SITAGLIPTIN PHOSPHATE
     Indication: Product used for unknown indication
     Dosage: 100 MILLIGRAM DAILY; TABLET TAKE ONE TABLET BY MOUTH ONCE DAILY
     Route: 048
     Dates: start: 201508
  12. METFORMIN HYDROCHLORIDE [Concomitant]
     Active Substance: METFORMIN HYDROCHLORIDE
     Indication: Product used for unknown indication
     Dosage: 2500 MILLIGRAM DAILY; TAKE THREE TABLETS BY MOUTH EVERY MORNING TAKE TWO TABLETS BY MOUTH EVERY EVEN
     Route: 048
     Dates: start: 201201
  13. ACETAMINOPHEN [Concomitant]
     Active Substance: ACETAMINOPHEN
     Indication: Product used for unknown indication
     Dosage: TAKE ONE TABLET BY MOUTH EVERY 4 HOURS AS NEEDED
     Route: 048
     Dates: start: 201409
  14. GLIPIZIDE XL [Concomitant]
     Active Substance: GLIPIZIDE
     Indication: Product used for unknown indication
     Dosage: 20 MILLIGRAM DAILY; TAKE ONE TABLET BY MOUTH TWICE A DAY
     Route: 048
     Dates: start: 201201

REACTIONS (7)
  - Colon cancer metastatic [Not Recovered/Not Resolved]
  - Metastases to lung [Not Recovered/Not Resolved]
  - Metastases to liver [Not Recovered/Not Resolved]
  - Prostate cancer [Not Recovered/Not Resolved]
  - Metastases to the mediastinum [Unknown]
  - Metastases to thorax [Recovering/Resolving]
  - Metastases to bone [Recovering/Resolving]
